FAERS Safety Report 9470597 (Version 1)
Quarter: 2013Q3

REPORT INFORMATION
  Report Type: Spontaneous
  Country: FR (occurrence: FR)
  Receive Date: 20130822
  Receipt Date: 20130822
  Transmission Date: 20140515
  Serious: Yes (Other)
  Sender: FDA-Public Use
  Company Number: FR-JNJFOC-20130809113

PATIENT
  Age: 41 Year
  Sex: Female

DRUGS (2)
  1. REMICADE [Suspect]
     Indication: CROHN^S DISEASE
     Route: 042
     Dates: start: 20130703, end: 20130703
  2. REMICADE [Suspect]
     Indication: CROHN^S DISEASE
     Dosage: CONFLICTINGLY REPORTED AS ONCE DAILY
     Route: 042
     Dates: start: 20130624

REACTIONS (5)
  - Infusion related reaction [Recovered/Resolved]
  - Malaise [Recovered/Resolved]
  - Dyspnoea [Recovered/Resolved]
  - Oropharyngeal discomfort [Recovered/Resolved]
  - Hot flush [Recovered/Resolved]
